FAERS Safety Report 10040037 (Version 2)
Quarter: 2014Q1

REPORT INFORMATION
  Report Type: Report from Study
  Country: DE (occurrence: DE)
  Receive Date: 20140326
  Receipt Date: 20140326
  Transmission Date: 20141002
  Serious: Yes (Disabling, Other)
  Sender: FDA-Public Use
  Company Number: DE-JNJFOC-20130812291

PATIENT
  Age: 50 Year
  Sex: Male
  Weight: 68 kg

DRUGS (20)
  1. IBRUTINIB [Suspect]
     Route: 048
  2. IBRUTINIB [Suspect]
     Indication: MANTLE CELL LYMPHOMA
     Route: 048
     Dates: start: 20130801
  3. ASA [Concomitant]
     Indication: CORONARY ARTERY DISEASE
     Route: 048
     Dates: start: 20130723
  4. BISOPROLOL [Concomitant]
     Indication: METABOLIC SYNDROME
     Route: 048
     Dates: start: 20130723
  5. BISOPROLOL [Concomitant]
     Indication: CORONARY ARTERY DISEASE
     Route: 048
     Dates: start: 20130723
  6. ENALAPRIL [Concomitant]
     Indication: METABOLIC SYNDROME
     Route: 048
     Dates: start: 20130723
  7. ENALAPRIL [Concomitant]
     Indication: CORONARY ARTERY DISEASE
     Route: 048
     Dates: start: 20130723
  8. SIMVASTATIN [Concomitant]
     Indication: METABOLIC SYNDROME
     Route: 048
     Dates: start: 20130723
  9. SIMVASTATIN [Concomitant]
     Indication: CORONARY ARTERY DISEASE
     Route: 048
     Dates: start: 20130723
  10. INFLANEFRAN [Concomitant]
     Indication: RETINOPATHY
     Route: 047
     Dates: start: 20130713
  11. NOVALGIN [Concomitant]
     Indication: PROPHYLAXIS
     Dosage: DOSE=20 DROPS BID
     Route: 048
     Dates: start: 20130723, end: 20130723
  12. NOVALGIN [Concomitant]
     Indication: PROPHYLAXIS
     Dosage: DOSE= 20 DROPS TID
     Route: 048
     Dates: start: 20130724, end: 20130727
  13. PROTAPHANE [Concomitant]
     Indication: DIABETES MELLITUS
     Route: 058
     Dates: start: 2008
  14. PROTAPHANE [Concomitant]
     Indication: DIABETES MELLITUS
     Dosage: DOSE=50 IE
     Route: 058
     Dates: start: 20130726, end: 20130802
  15. ISOPHANE INSULIN [Concomitant]
     Indication: DIABETES MELLITUS
     Dosage: DOSE= 50 IE X1
     Route: 058
     Dates: start: 20130723, end: 20130723
  16. INSULIN [Concomitant]
     Indication: DIABETES MELLITUS
     Dosage: DOSE= 30 IE DAILY
     Route: 058
     Dates: start: 20130727, end: 20130802
  17. LANTUS [Concomitant]
     Indication: DIABETES MELLITUS
     Dosage: DOSE= 30 IE DAILY
     Route: 058
  18. CLOPIDOGREL [Concomitant]
     Indication: CORONARY ARTERY DISEASE
     Dates: start: 201206, end: 20130719
  19. CLOPIDOGREL [Concomitant]
     Indication: MYOCARDIAL INFARCTION
     Dates: start: 201206, end: 20130719
  20. PANTOZOL [Concomitant]
     Indication: PROPHYLAXIS
     Dates: start: 20130912

REACTIONS (1)
  - Vitreous haemorrhage [Recovered/Resolved with Sequelae]
